FAERS Safety Report 8209230-4 (Version None)
Quarter: 2012Q1

REPORT INFORMATION
  Report Type: 
  Country: None (occurrence: None)
  Receive Date: 20120314
  Receipt Date: 20120305
  Transmission Date: 20120608
  Serious: Yes (Other)
  Sender: FDA-Public Use
  Company Number: PHHY2012BR019766

PATIENT
  Sex: Female
  Weight: 51 kg

DRUGS (4)
  1. CHLORTHALIDONE [Suspect]
     Dosage: 1 DF
     Route: 048
  2. HYGROTON [Suspect]
     Indication: HYPERTENSION
     Dosage: 1 DF (12.5 MG)
     Route: 048
     Dates: end: 20120304
  3. HYGROTON [Suspect]
     Dosage: 0.5 DF (25 MG)
     Route: 048
  4. HYGROTON [Suspect]
     Dosage: 1 DF (25 MG)
     Route: 048

REACTIONS (7)
  - BLOOD PRESSURE FLUCTUATION [None]
  - LABYRINTHITIS [None]
  - DIZZINESS [None]
  - ABDOMINAL DISTENSION [None]
  - BLOOD PRESSURE DECREASED [None]
  - FATIGUE [None]
  - WRONG TECHNIQUE IN DRUG USAGE PROCESS [None]
